FAERS Safety Report 8230241-7 (Version None)
Quarter: 2012Q1

REPORT INFORMATION
  Report Type: 
  Country: None (occurrence: None)
  Receive Date: 20120321
  Receipt Date: 20120321
  Transmission Date: 20120608
  Serious: Yes (Life-Threatening, Hospitalization)
  Sender: FDA-Public Use
  Company Number: None

PATIENT
  Age: 51 Year
  Sex: Female
  Weight: 65.4 kg

DRUGS (9)
  1. ZOLOFT [Concomitant]
  2. EVEROLIMUS  10MG NOVARTIS [Suspect]
     Indication: METASTATIC RENAL CELL CARCINOMA
     Dosage: 10MG (1 TABLET) ONCE DAILY ORAL
     Route: 048
     Dates: start: 20110926, end: 20111028
  3. METFORMIN HCL [Concomitant]
  4. BENADRYL [Concomitant]
  5. PANTOPRAZOLE [Concomitant]
  6. CLOBETASOL PROPIONATE [Concomitant]
  7. SYNTHROID [Concomitant]
  8. ATIVAN [Concomitant]
  9. M.V.I. [Concomitant]

REACTIONS (3)
  - PANCREATITIS [None]
  - HYPERTRIGLYCERIDAEMIA [None]
  - PSEUDOCYST [None]
